FAERS Safety Report 24140988 (Version 2)
Quarter: 2025Q3

REPORT INFORMATION
  Report Type: Report from Study
  Country: BR (occurrence: BR)
  Receive Date: 20240726
  Receipt Date: 20250909
  Transmission Date: 20251020
  Serious: No
  Sender: TAKEDA
  Company Number: BR-TAKEDA-2023TUS055000

PATIENT
  Sex: Female

DRUGS (3)
  1. VEDOLIZUMAB [Suspect]
     Active Substance: VEDOLIZUMAB
     Indication: Crohn^s disease
  2. VEDOLIZUMAB [Suspect]
     Active Substance: VEDOLIZUMAB
     Dosage: 300 MILLIGRAM, MONTHLY
     Dates: start: 202305
  3. VEDOLIZUMAB [Suspect]
     Active Substance: VEDOLIZUMAB
     Dosage: 300 MILLIGRAM, Q4WEEKS
     Dates: start: 20230626

REACTIONS (1)
  - Therapeutic reaction time decreased [Unknown]
